FAERS Safety Report 5738592-2 (Version None)
Quarter: 2008Q2

REPORT INFORMATION
  Report Type: 
  Country: None (occurrence: None)
  Receive Date: 20080509
  Receipt Date: 20070814
  Transmission Date: 20081010
  Serious: Yes (Other)
  Sender: FDA-Public Use
  Company Number: WWISSUE-105

PATIENT
  Age: 65 Year
  Sex: Female

DRUGS (3)
  1. PREDNISONE [Suspect]
  2. FORTICAL [Concomitant]
  3. NEURONTIN [Concomitant]

REACTIONS (1)
  - IMMUNE SYSTEM DISORDER [None]
